FAERS Safety Report 14699933 (Version 1)
Quarter: 2018Q1

REPORT INFORMATION
  Report Type: Spontaneous
  Country: GB (occurrence: GB)
  Receive Date: 20180330
  Receipt Date: 20180330
  Transmission Date: 20180509
  Serious: Yes (Other)
  Sender: FDA-Public Use
  Company Number: GB-TAKEDA-2018TUS007711

PATIENT
  Sex: Male
  Weight: 2.22 kg

DRUGS (1)
  1. ENTYVIO [Suspect]
     Active Substance: VEDOLIZUMAB
     Indication: CROHN^S DISEASE
     Dosage: 300 MG, UNK
     Route: 064
     Dates: start: 201705, end: 201801

REACTIONS (2)
  - Bradycardia foetal [Unknown]
  - Foetal growth restriction [Unknown]
